FAERS Safety Report 23870341 (Version 1)
Quarter: 2024Q2

REPORT INFORMATION
  Report Type: Other
  Country: IN (occurrence: None)
  Receive Date: 20240517
  Receipt Date: 20240517
  Transmission Date: 20240715
  Serious: Yes (Hospitalization, Other)
  Sender: FDA-Public Use
  Company Number: IN-Square Pharmaceuticals PLC-000013

PATIENT
  Age: 71 Year
  Sex: Female

DRUGS (1)
  1. CALCIUM CARBONATE [Suspect]
     Active Substance: CALCIUM CARBONATE
     Indication: Osteoporosis

REACTIONS (2)
  - Milk-alkali syndrome [Recovered/Resolved]
  - Incorrect dose administered [Recovered/Resolved]
